FAERS Safety Report 19183874 (Version 3)
Quarter: 2021Q4

REPORT INFORMATION
  Report Type: Spontaneous
  Country: US (occurrence: US)
  Receive Date: 20210427
  Receipt Date: 20211007
  Transmission Date: 20220303
  Serious: No
  Sender: FDA-Public Use
  Company Number: US-PFIZER INC-2020506878

PATIENT
  Age: 13 Year
  Sex: Female
  Weight: 69.85 kg

DRUGS (3)
  1. GENOTROPIN [Suspect]
     Active Substance: SOMATROPIN
     Indication: Growth hormone deficiency
     Dosage: 3 MG, 1X/DAY (3MG INJECTION EVERY NIGHT)
     Dates: start: 20200501
  2. GENOTROPIN [Suspect]
     Active Substance: SOMATROPIN
     Dosage: 3.2 MG, 1X/DAY (EVERY NIGHT TO HER ABDOMEN)
     Route: 058
     Dates: start: 2020
  3. GENOTROPIN [Suspect]
     Active Substance: SOMATROPIN
     Dosage: 12 MG

REACTIONS (3)
  - Device difficult to use [Unknown]
  - Poor quality device used [Unknown]
  - Needle issue [Unknown]

NARRATIVE: CASE EVENT DATE: 20200101
